FAERS Safety Report 13197810 (Version 14)
Quarter: 2019Q2

REPORT INFORMATION
  Report Type: Spontaneous
  Country: US (occurrence: US)
  Receive Date: 20170208
  Receipt Date: 20190627
  Transmission Date: 20190711
  Serious: Yes (Other)
  Sender: FDA-Public Use
  Company Number: US-PFIZER INC-2017056060

PATIENT
  Age: 42 Year
  Sex: Male

DRUGS (27)
  1. DILANTIN [Suspect]
     Active Substance: PHENYTOIN
     Indication: FOCAL DYSCOGNITIVE SEIZURES
     Dosage: 400 MG, 1X/DAY (AT BEDTIME)
     Route: 048
  2. DILANTIN [Suspect]
     Active Substance: PHENYTOIN
     Dosage: 400 MG, SINGLE (IV SLOW PUSH OVER 30 MINS AT 50 MG/MIN)
     Dates: start: 20130331, end: 20130331
  3. DILANTIN [Suspect]
     Active Substance: PHENYTOIN
     Dosage: 400 MG, SINGLE
     Route: 048
     Dates: start: 20130331, end: 20130331
  4. DILANTIN [Suspect]
     Active Substance: PHENYTOIN
     Dosage: 100 MG, (7 TIMES DAILY) UNK
     Route: 048
  5. KEPPRA [Concomitant]
     Active Substance: LEVETIRACETAM
     Indication: SEIZURE
     Dosage: UNK
     Dates: start: 2015
  6. BUPROPION HCL [Concomitant]
     Active Substance: BUPROPION HYDROCHLORIDE
     Dosage: 100 MG, 1X/DAY
     Route: 048
  7. DILANTIN [Suspect]
     Active Substance: PHENYTOIN
     Indication: GENERALISED TONIC-CLONIC SEIZURE
     Dosage: 100 MG, 3X/DAY
     Route: 048
     Dates: start: 19990825
  8. KEPPRA [Concomitant]
     Active Substance: LEVETIRACETAM
     Dosage: 1000 MG, 3X/DAY
     Route: 048
  9. ATIVAN [Concomitant]
     Active Substance: LORAZEPAM
     Dosage: 0.5 ML, UNK
     Route: 042
     Dates: start: 20161116
  10. DILANTIN [Suspect]
     Active Substance: PHENYTOIN
     Dosage: 100 MG, (5 TIMES DAILY FOR 30 DAYS) UNK
  11. KEPPRA [Concomitant]
     Active Substance: LEVETIRACETAM
     Dosage: 2 DF, UNK
     Route: 048
     Dates: start: 20161116
  12. VALIUM [Concomitant]
     Active Substance: DIAZEPAM
     Dosage: 10 MG, UNK
  13. DILANTIN [Suspect]
     Active Substance: PHENYTOIN
     Indication: GENERALISED TONIC-CLONIC SEIZURE
     Dosage: UNK
     Route: 048
  14. DILANTIN [Suspect]
     Active Substance: PHENYTOIN
     Indication: SEIZURE
     Dosage: 5 DF, UNK
     Route: 048
     Dates: start: 20161116
  15. LEVETIRACETAM. [Concomitant]
     Active Substance: LEVETIRACETAM
     Dosage: 500 MG, 2X/DAY (FOR TWO WEEKS)
     Route: 048
  16. PROAIR HFA [Concomitant]
     Active Substance: ALBUTEROL SULFATE
     Dosage: UNK, AS NEEDED
  17. DILANTIN [Suspect]
     Active Substance: PHENYTOIN
     Indication: SEIZURE
  18. KEPPRA [Concomitant]
     Active Substance: LEVETIRACETAM
     Dosage: 1000 MG, 2X/DAY
  19. DILANTIN [Suspect]
     Active Substance: PHENYTOIN
     Indication: PETIT MAL EPILEPSY
  20. DILANTIN [Suspect]
     Active Substance: PHENYTOIN
     Dosage: 400 MG, SINGLE
     Route: 048
     Dates: start: 20130331, end: 20130331
  21. KEPPRA [Concomitant]
     Active Substance: LEVETIRACETAM
     Dosage: 750 MG, 2X/DAY
  22. LEVETIRACETAM. [Concomitant]
     Active Substance: LEVETIRACETAM
     Dosage: 750 MG, UNK (4 WEEKS)
     Route: 048
  23. LEVETIRACETAM. [Concomitant]
     Active Substance: LEVETIRACETAM
     Dosage: 1000 MG, 2X/DAY (30 DAYS)
     Route: 048
  24. DILANTIN [Suspect]
     Active Substance: PHENYTOIN
     Indication: FOCAL DYSCOGNITIVE SEIZURES
  25. DILANTIN [Suspect]
     Active Substance: PHENYTOIN
     Indication: PETIT MAL EPILEPSY
  26. DIAZEPAM. [Concomitant]
     Active Substance: DIAZEPAM
     Dosage: 10 MG, 2X/DAY
     Route: 048
  27. HYDROXYUREA. [Concomitant]
     Active Substance: HYDROXYUREA
     Dosage: 500 MG, DAILY (1 PILL)
     Route: 048

REACTIONS (14)
  - Ataxia [Not Recovered/Not Resolved]
  - Cerebral atrophy [Not Recovered/Not Resolved]
  - Tremor [Not Recovered/Not Resolved]
  - Head discomfort [Unknown]
  - Cerebellar atrophy [Not Recovered/Not Resolved]
  - Encephalomalacia [Unknown]
  - Fatigue [Not Recovered/Not Resolved]
  - Fall [Not Recovered/Not Resolved]
  - Muscle spasms [Unknown]
  - Hand fracture [Not Recovered/Not Resolved]
  - Dizziness [Not Recovered/Not Resolved]
  - Headache [Unknown]
  - Memory impairment [Unknown]
  - Limb injury [Unknown]

NARRATIVE: CASE EVENT DATE: 20060522
